FAERS Safety Report 6974877-X (Version None)
Quarter: 2010Q3

REPORT INFORMATION
  Report Type: 
  Country: None (occurrence: None)
  Receive Date: 20100909
  Receipt Date: 20081210
  Transmission Date: 20110219
  Serious: No
  Sender: FDA-Public Use
  Company Number: US-WYE-H07188708

PATIENT
  Sex: Female

DRUGS (2)
  1. PROTONIX [Suspect]
     Indication: GASTROOESOPHAGEAL REFLUX DISEASE
     Route: 048
     Dates: start: 20080801, end: 20080901
  2. REMERON [Concomitant]

REACTIONS (2)
  - SALIVARY HYPERSECRETION [None]
  - WRONG TECHNIQUE IN DRUG USAGE PROCESS [None]
